FAERS Safety Report 13206269 (Version 1)
Quarter: 2017Q1

REPORT INFORMATION
  Report Type: Spontaneous
  Country: US (occurrence: US)
  Receive Date: 20170208
  Receipt Date: 20170208
  Transmission Date: 20170428
  Serious: Yes (Other)
  Sender: FDA-Public Use
  Company Number: None

PATIENT
  Age: 85 Year
  Sex: Female
  Weight: 70.82 kg

DRUGS (1)
  1. PROLIA [Suspect]
     Active Substance: DENOSUMAB
     Indication: OSTEOPOROSIS
     Route: 058
     Dates: start: 20160301

REACTIONS (7)
  - Pruritus [None]
  - Bone pain [None]
  - Eye disorder [None]
  - Paraesthesia [None]
  - Back pain [None]
  - Musculoskeletal pain [None]
  - Fatigue [None]

NARRATIVE: CASE EVENT DATE: 20160331
